FAERS Safety Report 4710792-X (Version None)
Quarter: 2005Q3

REPORT INFORMATION
  Report Type: 
  Country: None (occurrence: None)
  Receive Date: 20050711
  Receipt Date: 20050701
  Transmission Date: 20060218
  Serious: Yes (Hospitalization)
  Sender: FDA-Public Use
  Company Number: GB-ABBOTT-05P-167-0304851-00

PATIENT
  Age: 37 Year
  Sex: Male

DRUGS (2)
  1. EPILIM [Suspect]
     Indication: DRUG USE FOR UNKNOWN INDICATION
     Route: 065
  2. CARBAMAZEPINE [Suspect]
     Indication: DRUG USE FOR UNKNOWN INDICATION
     Route: 065

REACTIONS (2)
  - CONVULSION [None]
  - OVERDOSE [None]
